FAERS Safety Report 4863683-8 (Version None)
Quarter: 2005Q4

REPORT INFORMATION
  Report Type: 
  Country: None (occurrence: None)
  Receive Date: 20051222
  Receipt Date: 20050621
  Transmission Date: 20060501
  Serious: No
  Sender: FDA-Public Use
  Company Number: US-GLAXOSMITHKLINE-A0563640A

PATIENT
  Sex: Female

DRUGS (5)
  1. FLONASE [Suspect]
     Dosage: 4SPR PER DAY
     Route: 045
  2. SALINE SPRAY [Concomitant]
     Route: 045
  3. AZMACORT [Concomitant]
  4. SINGULAIR [Concomitant]
  5. PREVACID [Concomitant]

REACTIONS (2)
  - NASAL DRYNESS [None]
  - NERVOUSNESS [None]
